FAERS Safety Report 16978705 (Version 1)
Quarter: 2019Q4

REPORT INFORMATION
  Report Type: Spontaneous
  Country: US (occurrence: US)
  Receive Date: 20190916
  Receipt Date: 20190916
  Transmission Date: 20200122
  Serious: No
  Sender: FDA-Public Use
  Company Number: None

PATIENT
  Age: 24 Year
  Sex: Female

DRUGS (1)
  1. TRIENTINE HCL CAP [Suspect]
     Active Substance: TRIENTINE HYDROCHLORIDE
     Route: 048
     Dates: start: 20190711

REACTIONS (2)
  - Product substitution issue [None]
  - Diarrhoea [None]

NARRATIVE: CASE EVENT DATE: 20190819
